FAERS Safety Report 19588837 (Version 1)
Quarter: 2021Q3

REPORT INFORMATION
  Report Type: Spontaneous
  Country: US (occurrence: US)
  Receive Date: 20210721
  Receipt Date: 20210721
  Transmission Date: 20211014
  Serious: Yes (Other)
  Sender: FDA-Public Use
  Company Number: US-ALIMERA SCIENCES INC.-US-A16013-21-000156

PATIENT

DRUGS (1)
  1. ILUVIEN [Suspect]
     Active Substance: FLUOCINOLONE ACETONIDE
     Indication: PRODUCT USED FOR UNKNOWN INDICATION
     Dosage: 0.25 MICROGRAM, QD, UNKNOWN EYE
     Route: 031

REACTIONS (4)
  - Medical device removal [Recovered/Resolved]
  - Device dislocation [Recovered/Resolved]
  - Uveitis [Unknown]
  - Retinal degeneration [Unknown]

NARRATIVE: CASE EVENT DATE: 2020
